FAERS Safety Report 17780739 (Version 1)
Quarter: 2020Q2

REPORT INFORMATION
  Report Type: Spontaneous
  Country: US (occurrence: US)
  Receive Date: 20200513
  Receipt Date: 20200513
  Transmission Date: 20200714
  Serious: No
  Sender: FDA-Public Use
  Company Number: None

PATIENT
  Age: 69 Year
  Sex: Male

DRUGS (1)
  1. SEMAGLUTIDE (SEMAGLUTIDE 0.5/0.375 ML INJ, SOLN, PEN 1.5ML [Suspect]
     Active Substance: SEMAGLUTIDE
     Dates: start: 20200219, end: 20200416

REACTIONS (1)
  - Constipation [None]

NARRATIVE: CASE EVENT DATE: 20200416
